FAERS Safety Report 7013511-X (Version None)
Quarter: 2010Q3

REPORT INFORMATION
  Report Type: 
  Country: None (occurrence: None)
  Receive Date: 20100924
  Receipt Date: 20100916
  Transmission Date: 20110219
  Serious: Yes (Hospitalization)
  Sender: FDA-Public Use
  Company Number: JP-ABBOTT-10P-087-0667000-00

PATIENT
  Sex: Female
  Weight: 20.43 kg

DRUGS (6)
  1. HUMIRA [Suspect]
     Indication: RHEUMATOID ARTHRITIS
     Route: 058
     Dates: start: 20100330, end: 20100630
  2. METHOTREXATE [Concomitant]
     Indication: RHEUMATOID ARTHRITIS
     Route: 048
     Dates: start: 20090126
  3. FOLIC ACID [Concomitant]
     Indication: PROPHYLAXIS
     Route: 048
     Dates: start: 20090126
  4. FOLIC ACID [Concomitant]
     Indication: ADVERSE DRUG REACTION
  5. ALENDRONATE SODIUM HYDRATE [Concomitant]
     Indication: OSTEOPOROSIS
     Route: 048
     Dates: start: 20090601
  6. ALFACALCIDOL [Concomitant]
     Indication: OSTEOPOROSIS
     Route: 048
     Dates: start: 20090316

REACTIONS (4)
  - DERMATOMYOSITIS [None]
  - GINGIVAL BLEEDING [None]
  - JOINT SWELLING [None]
  - OEDEMA PERIPHERAL [None]
